FAERS Safety Report 10958704 (Version 1)
Quarter: 2015Q1

REPORT INFORMATION
  Report Type: Spontaneous
  Country: US (occurrence: None)
  Receive Date: 20150226
  Receipt Date: 20150226
  Transmission Date: 20150721
  Serious: Yes (Other)
  Sender: FDA-Public Use
  Company Number: TPA2009A01753

PATIENT
  Age: 64 Year
  Sex: Female

DRUGS (2)
  1. CALAN ()VERAPAMIL HYDROCHLORIDE) [Concomitant]
  2. PREVACID [Suspect]
     Active Substance: LANSOPRAZOLE
     Indication: GASTROOESOPHAGEAL REFLUX DISEASE
     Route: 048
     Dates: start: 2004

REACTIONS (2)
  - Cerebrovascular accident [None]
  - Blood pressure increased [None]

NARRATIVE: CASE EVENT DATE: 20090430
